FAERS Safety Report 19105944 (Version 2)
Quarter: 2022Q1

REPORT INFORMATION
  Report Type: Spontaneous
  Country: ES (occurrence: ES)
  Receive Date: 20210407
  Receipt Date: 20220113
  Transmission Date: 20220423
  Serious: Yes (Life-Threatening, Hospitalization, Other)
  Sender: FDA-Public Use
  Company Number: ES-ANGELINI FARMACEUTICA SA-2021-024204

PATIENT
  Age: 71 Year
  Sex: Female

DRUGS (4)
  1. ALPRAZOLAM [Suspect]
     Active Substance: ALPRAZOLAM
     Indication: Intentional self-injury
     Dosage: UNK
     Route: 065
  2. RAMIPRIL [Suspect]
     Active Substance: RAMIPRIL
     Indication: Intentional self-injury
     Dosage: UNK
     Route: 065
  3. IVABRADINE [Suspect]
     Active Substance: IVABRADINE
     Indication: Intentional self-injury
     Dosage: UNK
     Route: 065
  4. TRAZODONE [Suspect]
     Active Substance: TRAZODONE HYDROCHLORIDE
     Indication: Intentional self-injury
     Dosage: UNK
     Route: 065

REACTIONS (8)
  - Soft tissue necrosis [Unknown]
  - Intentional overdose [Unknown]
  - Coma [Recovered/Resolved]
  - Hypotension [Unknown]
  - Rash erythematous [Unknown]
  - Blister [Unknown]
  - Erythema [Not Recovered/Not Resolved]
  - Toxicity to various agents [Recovered/Resolved]
